FAERS Safety Report 8267872-4 (Version None)
Quarter: 2012Q2

REPORT INFORMATION
  Report Type: 
  Country: None (occurrence: None)
  Receive Date: 20120404
  Receipt Date: 20120326
  Transmission Date: 20120825
  Serious: Yes (Other)
  Sender: FDA-Public Use
  Company Number: 2012MA003998

PATIENT
  Age: 39 Year
  Sex: Male

DRUGS (2)
  1. CARBAMAZEPINE [Suspect]
     Indication: ALCOHOL WITHDRAWAL SYNDROME
  2. FLUOXETINE [Suspect]
     Indication: ALCOHOL WITHDRAWAL SYNDROME

REACTIONS (2)
  - ORAL LICHEN PLANUS [None]
  - LICHENIFICATION [None]
